FAERS Safety Report 13900927 (Version 1)
Quarter: 2017Q3

REPORT INFORMATION
  Report Type: Report from Study
  Country: DE (occurrence: DE)
  Receive Date: 20170824
  Receipt Date: 20170824
  Transmission Date: 20171127
  Serious: Yes (Other)
  Sender: FDA-Public Use
  Company Number: DE-BIOGEN-2016BI00295824

PATIENT
  Sex: Female
  Weight: 63 kg

DRUGS (4)
  1. FOLIOFORTE [Concomitant]
     Indication: CONTRACEPTION
     Route: 065
     Dates: start: 201607
  2. VITAMIN D [Concomitant]
     Active Substance: CHOLECALCIFEROL
     Indication: MULTIPLE SCLEROSIS
     Route: 065
     Dates: start: 2014
  3. MAGNESIUM [Concomitant]
     Active Substance: MAGNESIUM
     Indication: CONTRACEPTION
     Route: 065
     Dates: start: 201607
  4. TECFIDERA [Suspect]
     Active Substance: DIMETHYL FUMARATE
     Indication: MULTIPLE SCLEROSIS
     Dosage: MAINTENANCE DOSE
     Route: 048
     Dates: start: 20160627, end: 20160827

REACTIONS (2)
  - Placental disorder [Recovered/Resolved]
  - Maternal exposure during pregnancy [Recovered/Resolved]
